FAERS Safety Report 8001388-5 (Version None)
Quarter: 2011Q4

REPORT INFORMATION
  Report Type: 
  Country: None (occurrence: None)
  Receive Date: 20111219
  Receipt Date: 20111212
  Transmission Date: 20120403
  Serious: No
  Sender: FDA-Public Use
  Company Number: 2011SP057952

PATIENT
  Age: 50 Year
  Sex: Female

DRUGS (2)
  1. SAPHRIS [Suspect]
     Indication: BIPOLAR DISORDER
     Dosage: 10 MG;QD;SL
     Route: 060
  2. RISPERIDONE [Concomitant]

REACTIONS (2)
  - RASH [None]
  - DIZZINESS [None]
